FAERS Safety Report 10864829 (Version 1)
Quarter: 2015Q1

REPORT INFORMATION
  Report Type: Spontaneous
  Country: NO (occurrence: NO)
  Receive Date: 20150224
  Receipt Date: 20150224
  Transmission Date: 20150721
  Serious: Yes (Death, Other)
  Sender: FDA-Public Use
  Company Number: NO-GLAXOSMITHKLINE-NO2015022603

PATIENT
  Sex: Female
  Weight: 80 kg

DRUGS (3)
  1. PREDNISOLON [Suspect]
     Active Substance: PREDNISOLONE
     Indication: HERPES OPHTHALMIC
     Dosage: DOSE REDUCTION FROM 25 MG
     Dates: start: 20150114, end: 20150128
  2. OFTAN [Concomitant]
     Active Substance: TIMOLOL MALEATE
  3. VALTREX [Suspect]
     Active Substance: VALACYCLOVIR HYDROCHLORIDE
     Indication: HERPES OPHTHALMIC
     Dates: end: 20150128

REACTIONS (2)
  - Acute psychosis [Fatal]
  - Completed suicide [Fatal]
